FAERS Safety Report 6757878-6 (Version None)
Quarter: 2010Q2

REPORT INFORMATION
  Report Type: 
  Country: None (occurrence: None)
  Receive Date: 20100604
  Receipt Date: 20100604
  Transmission Date: 20101027
  Serious: Yes (Other)
  Sender: FDA-Public Use
  Company Number: None

PATIENT
  Age: 33 Year
  Sex: Female
  Weight: 74.3899 kg

DRUGS (1)
  1. BUDEPRION XL 300 MG IMPAX LAB FOR TEVA PHARMACEUTICALS [Suspect]
     Indication: DEPRESSION
     Dosage: 1 ONCE DAILY PO
     Route: 048
     Dates: start: 20100303, end: 20100313

REACTIONS (15)
  - ANGER [None]
  - ANXIETY [None]
  - DECREASED APPETITE [None]
  - DRY MOUTH [None]
  - INSOMNIA [None]
  - IRRITABILITY [None]
  - MOOD SWINGS [None]
  - PHARYNGEAL OEDEMA [None]
  - PRODUCT SUBSTITUTION ISSUE [None]
  - PRURITUS [None]
  - RASH GENERALISED [None]
  - THIRST [None]
  - TINNITUS [None]
  - TREMOR [None]
  - URTICARIA [None]
